FAERS Safety Report 19259790 (Version 1)
Quarter: 2021Q2

REPORT INFORMATION
  Report Type: Spontaneous
  Country: US (occurrence: US)
  Receive Date: 20210514
  Receipt Date: 20210514
  Transmission Date: 20210717
  Serious: Yes (Other)
  Sender: FDA-Public Use
  Company Number: US-PFIZER INC-2021498010

PATIENT
  Age: 61 Year
  Sex: Female

DRUGS (1)
  1. LYRICA [Suspect]
     Active Substance: PREGABALIN
     Dosage: 200 MG, 3X/DAY

REACTIONS (7)
  - Angioedema [Unknown]
  - Oedema peripheral [Unknown]
  - Dizziness [Unknown]
  - Hypersensitivity [Unknown]
  - Diabetic neuropathy [Unknown]
  - Somnolence [Unknown]
  - Weight increased [Unknown]
